FAERS Safety Report 7223276-4 (Version None)
Quarter: 2011Q1

REPORT INFORMATION
  Report Type: 
  Country: None (occurrence: None)
  Receive Date: 20110112
  Receipt Date: 20100413
  Transmission Date: 20110831
  Serious: No
  Sender: FDA-Public Use
  Company Number: US-ALLERGAN-1004787US

PATIENT
  Sex: Female

DRUGS (6)
  1. METFORMIN [Concomitant]
  2. SYSTANE [Concomitant]
  3. RESTASIS [Suspect]
     Indication: DRY EYE
  4. LEVOTHYROXINE [Concomitant]
  5. ZOCOR [Concomitant]
  6. INSULIN [Concomitant]

REACTIONS (4)
  - NASAL DISCOMFORT [None]
  - VISION BLURRED [None]
  - HEADACHE [None]
  - EYE PRURITUS [None]
